FAERS Safety Report 5084031-7 (Version None)
Quarter: 2006Q3

REPORT INFORMATION
  Report Type: 
  Country: None (occurrence: None)
  Receive Date: 20060819
  Receipt Date: 20060811
  Transmission Date: 20061208
  Serious: Yes (Hospitalization)
  Sender: FDA-Public Use
  Company Number: FR-BOEHRINGER INGELHEIM PHARMACEUTICALS, INC.-2006-FF-00712FF

PATIENT
  Age: 73 Year
  Sex: Male

DRUGS (5)
  1. ASASANTINE LP [Suspect]
     Route: 048
  2. ALLOPURINOL [Suspect]
     Route: 048
     Dates: start: 20060524, end: 20060628
  3. COVERSYL [Suspect]
     Route: 048
  4. AMLODIPINE BESYLATE [Suspect]
  5. DAFLON [Concomitant]
     Route: 048

REACTIONS (3)
  - EOSINOPHILIA [None]
  - RASH ERYTHEMATOUS [None]
  - RENAL FAILURE ACUTE [None]
